FAERS Safety Report 9787857 (Version 4)
Quarter: 2014Q1

REPORT INFORMATION
  Report Type: Report from Study
  Country: CA (occurrence: CA)
  Receive Date: 20131230
  Receipt Date: 20140303
  Transmission Date: 20141002
  Serious: Yes (Hospitalization, Other)
  Sender: FDA-Public Use
  Company Number: CA-ROCHE-1298218

PATIENT
  Age: 57 Year
  Sex: Female
  Weight: 51 kg

DRUGS (6)
  1. KADCYLA [Suspect]
     Indication: BREAST CANCER METASTATIC
     Dosage: DISCONTINUED DUE TO DISEASE PROGRESSION
     Route: 042
     Dates: start: 20131021, end: 20140122
  2. KADCYLA [Suspect]
     Route: 042
     Dates: start: 20131211
  3. XELODA [Suspect]
     Indication: BREAST CANCER METASTATIC
     Route: 048
     Dates: start: 2012, end: 2013
  4. HERCEPTIN [Suspect]
     Indication: BREAST CANCER
     Route: 042
     Dates: start: 201101, end: 201201
  5. DECADRON [Concomitant]
  6. PANTOLOC [Concomitant]

REACTIONS (15)
  - Hepatic function abnormal [Not Recovered/Not Resolved]
  - Neuropathy peripheral [Not Recovered/Not Resolved]
  - Pyrexia [Unknown]
  - Back pain [Unknown]
  - Hypotension [Unknown]
  - Stomatitis [Not Recovered/Not Resolved]
  - Fatigue [Not Recovered/Not Resolved]
  - Dyspnoea [Not Recovered/Not Resolved]
  - Rash [Not Recovered/Not Resolved]
  - Red blood cell count decreased [Unknown]
  - Fatigue [Recovered/Resolved]
  - Tumour pain [Unknown]
  - Feeling hot [Unknown]
  - No therapeutic response [Unknown]
  - Disease progression [Unknown]
